FAERS Safety Report 13759302 (Version 13)
Quarter: 2018Q3

REPORT INFORMATION
  Report Type: Report from Study
  Country: DE (occurrence: DE)
  Receive Date: 20170717
  Receipt Date: 20180831
  Transmission Date: 20181010
  Serious: Yes (Hospitalization, Other)
  Sender: FDA-Public Use
  Company Number: PHHY2016DE115328

PATIENT
  Age: 2 Year
  Sex: Male
  Weight: 12.2 kg

DRUGS (62)
  1. ETOPOSIDE. [Suspect]
     Active Substance: ETOPOSIDE
     Indication: ACUTE LYMPHOCYTIC LEUKAEMIA
     Dosage: 52 MG, UNK (5 APPLICATIONS TO 52 MG
     Route: 042
     Dates: start: 20160206, end: 20160208
  2. DOXORUBICIN [Suspect]
     Active Substance: DOXORUBICIN
     Dosage: 13.5 MG, UNK
     Route: 042
  3. CYCLOPHOSPHAMIDE. [Suspect]
     Active Substance: CYCLOPHOSPHAMIDE
     Indication: PHILADELPHIA CHROMOSOME POSITIVE
     Dosage: 550 MG, QD
     Route: 042
     Dates: start: 20151203, end: 20151203
  4. CYCLOPHOSPHAMIDE. [Suspect]
     Active Substance: CYCLOPHOSPHAMIDE
     Dosage: 110 MG, UNK (5 APPLICATIONS TO 110 MG)
     Route: 042
     Dates: start: 20151219, end: 20151221
  5. CYTARABINE. [Suspect]
     Active Substance: CYTARABINE
     Indication: PHILADELPHIA CHROMOSOME POSITIVE
     Dosage: 41 MG, QD
     Route: 042
     Dates: start: 20151026, end: 20151029
  6. VINCRISTINE [Suspect]
     Active Substance: VINCRISTINE
     Dosage: 0.8 MG, ONCE/SINGLE
     Route: 042
     Dates: start: 20160324
  7. ASPARAGINASE [Suspect]
     Active Substance: ASPARAGINASE
     Dosage: 5400 IU, UNK
     Route: 042
  8. GLIVEC [Suspect]
     Active Substance: IMATINIB MESYLATE
     Indication: PHILADELPHIA CHROMOSOME POSITIVE
  9. CYTARABINE. [Suspect]
     Active Substance: CYTARABINE
     Dosage: 41 MG, QD
     Route: 042
     Dates: start: 20151109, end: 20151112
  10. CYTARABINE. [Suspect]
     Active Substance: CYTARABINE
     Dosage: 1040 MG, UNK (4 APPLICATIONS TO 1040 MG)
     Route: 042
     Dates: start: 20160204, end: 20160206
  11. CYTARABINE. [Suspect]
     Active Substance: CYTARABINE
     Dosage: UNK
     Route: 065
     Dates: end: 20160811
  12. VINCRISTINE [Suspect]
     Active Substance: VINCRISTINE
     Indication: PHILADELPHIA CHROMOSOME POSITIVE
     Dosage: 0.8 MG, ONCE/SINGLE
     Route: 042
     Dates: start: 20151223, end: 20151223
  13. ASPARAGINASE [Suspect]
     Active Substance: ASPARAGINASE
     Dosage: 5400 IU, UNK
     Route: 042
     Dates: start: 20160306
  14. ASPARAGINASE [Suspect]
     Active Substance: ASPARAGINASE
     Dosage: 5400 IU, UNK
     Route: 042
     Dates: start: 20160620
  15. METHOTREXATE. [Suspect]
     Active Substance: METHOTREXATE
     Dosage: UNK
     Route: 048
     Dates: start: 20160913
  16. DOXORUBICIN [Suspect]
     Active Substance: DOXORUBICIN
     Indication: ACUTE LYMPHOCYTIC LEUKAEMIA
     Dosage: 13.5 MG, UNK
     Route: 042
     Dates: start: 20160303
  17. DOXORUBICIN [Suspect]
     Active Substance: DOXORUBICIN
     Dosage: 13.5 MG, UNK
     Route: 042
     Dates: start: 20160620
  18. CYTARABINE. [Suspect]
     Active Substance: CYTARABINE
     Indication: ACUTE LYMPHOCYTIC LEUKAEMIA
     Dosage: 41 MG, QD
     Route: 042
     Dates: start: 20151019, end: 20151222
  19. VINCRISTINE [Suspect]
     Active Substance: VINCRISTINE
     Dosage: 0.8 MG, ONCE/SINGLE
     Route: 042
     Dates: start: 20160627
  20. ASPARAGINASE [Suspect]
     Active Substance: ASPARAGINASE
     Dosage: 5400 IU, UNK
     Route: 042
     Dates: start: 20160310
  21. ASPARAGINASE [Suspect]
     Active Substance: ASPARAGINASE
     Dosage: 5400 IU, UNK
     Route: 042
     Dates: start: 20160627
  22. GLIVEC [Suspect]
     Active Substance: IMATINIB MESYLATE
     Indication: ACUTE LYMPHOCYTIC LEUKAEMIA
     Dosage: 150 MG, QD
     Route: 048
     Dates: start: 20150921, end: 20170307
  23. DOXORUBICIN [Suspect]
     Active Substance: DOXORUBICIN
     Dosage: 13.5 MG, UNK
     Route: 042
     Dates: start: 20160324
  24. VINCRISTINE [Suspect]
     Active Substance: VINCRISTINE
     Dosage: 0.8 MG, ONCE/SINGLE
     Route: 042
     Dates: start: 20160317
  25. VINCRISTINE [Suspect]
     Active Substance: VINCRISTINE
     Dosage: 0.8 MG, ONCE/SINGLE
     Route: 042
     Dates: start: 20160704
  26. VINCRISTINE [Suspect]
     Active Substance: VINCRISTINE
     Dosage: 0.8 MG, ONCE/SINGLE
     Route: 042
     Dates: start: 20160712, end: 20160712
  27. IFOSFAMIDE. [Suspect]
     Active Substance: IFOSFAMIDE
     Indication: ACUTE LYMPHOCYTIC LEUKAEMIA
     Dosage: 416 MG, QD
     Route: 042
     Dates: start: 20160115, end: 20160117
  28. IFOSFAMIDE. [Suspect]
     Active Substance: IFOSFAMIDE
     Indication: PHILADELPHIA CHROMOSOME POSITIVE
  29. DAUNORUBICIN [Suspect]
     Active Substance: DAUNORUBICIN
     Indication: ACUTE LYMPHOCYTIC LEUKAEMIA
     Dosage: 16 MG, QD
     Route: 042
     Dates: start: 20160118, end: 20160119
  30. METHOTREXATE. [Suspect]
     Active Substance: METHOTREXATE
     Indication: ACUTE LYMPHOCYTIC LEUKAEMIA
     Dosage: 2700 MG, QD
     Route: 042
     Dates: start: 20151218, end: 20151219
  31. METHOTREXATE. [Suspect]
     Active Substance: METHOTREXATE
     Dosage: REGULARY APPLICATION VIA THERAPY ELEMENT HR3
     Route: 037
     Dates: start: 20160208
  32. CYCLOPHOSPHAMIDE. [Suspect]
     Active Substance: CYCLOPHOSPHAMIDE
     Indication: ACUTE LYMPHOCYTIC LEUKAEMIA
     Dosage: 550 MG, QD
     Route: 042
     Dates: start: 20151017, end: 20151017
  33. CYCLOPHOSPHAMIDE. [Suspect]
     Active Substance: CYCLOPHOSPHAMIDE
     Dosage: 560 MG, UNK
     Route: 042
     Dates: start: 20160416, end: 20160416
  34. CYTARABINE. [Suspect]
     Active Substance: CYTARABINE
     Dosage: 42 MG, UNK
     Route: 042
  35. ASPARAGINASE [Suspect]
     Active Substance: ASPARAGINASE
     Indication: PHILADELPHIA CHROMOSOME POSITIVE
     Dosage: 13000 IU, QD
     Route: 042
     Dates: start: 20160209, end: 20160209
  36. DAUNORUBICIN [Suspect]
     Active Substance: DAUNORUBICIN
     Indication: PHILADELPHIA CHROMOSOME POSITIVE
  37. ETOPOSIDE. [Suspect]
     Active Substance: ETOPOSIDE
     Indication: PHILADELPHIA CHROMOSOME POSITIVE
  38. DOXORUBICIN [Suspect]
     Active Substance: DOXORUBICIN
     Indication: PHILADELPHIA CHROMOSOME POSITIVE
     Dosage: 13.5 MG, UNK
     Route: 042
     Dates: start: 20160310
  39. DOXORUBICIN [Suspect]
     Active Substance: DOXORUBICIN
     Dosage: 13.5 MG, UNK
     Route: 042
     Dates: start: 20160704
  40. DOXORUBICIN [Suspect]
     Active Substance: DOXORUBICIN
     Dosage: 13.5 MG, UNK
     Route: 042
     Dates: start: 20160712
  41. VINCRISTINE [Suspect]
     Active Substance: VINCRISTINE
     Dosage: 0.8 MG, ONCE/SINGLE
     Route: 042
     Dates: start: 20160119, end: 20160119
  42. VINCRISTINE [Suspect]
     Active Substance: VINCRISTINE
     Dosage: 0.8 MG, ONCE/SINGLE
     Route: 042
     Dates: start: 20160303, end: 20160303
  43. VINCRISTINE [Suspect]
     Active Substance: VINCRISTINE
     Dosage: 0.8 MG, ONCE/SINGLE
     Route: 042
     Dates: start: 20160620
  44. ASPARAGINASE [Suspect]
     Active Substance: ASPARAGINASE
     Indication: ACUTE LYMPHOCYTIC LEUKAEMIA
     Dosage: 13500 IU, QD
     Route: 042
     Dates: start: 20151223, end: 20151223
  45. ASPARAGINASE [Suspect]
     Active Substance: ASPARAGINASE
     Dosage: 5400 IU, UNK
     Route: 042
  46. MERCAPTOPURINE. [Suspect]
     Active Substance: MERCAPTOPURINE
     Indication: PRODUCT USED FOR UNKNOWN INDICATION
     Dosage: UNK
     Route: 048
     Dates: start: 20160913
  47. GLIVEC [Suspect]
     Active Substance: IMATINIB MESYLATE
     Indication: SYSTEMIC SCLERODERMA
  48. METHOTREXATE. [Suspect]
     Active Substance: METHOTREXATE
     Indication: PHILADELPHIA CHROMOSOME POSITIVE
     Dosage: 2600 MG, QD (1 APPLICATION ABOUT 24 HOURS)
     Route: 042
     Dates: start: 20160114, end: 20160115
  49. DOXORUBICIN [Suspect]
     Active Substance: DOXORUBICIN
     Dosage: 13.5 MG, UNK
     Route: 042
     Dates: start: 20160627
  50. CYTARABINE. [Suspect]
     Active Substance: CYTARABINE
     Dosage: 41 MG, QD
     Route: 042
     Dates: start: 20151102, end: 20151105
  51. VINCRISTINE [Suspect]
     Active Substance: VINCRISTINE
     Indication: ACUTE LYMPHOCYTIC LEUKAEMIA
     Dosage: 0.8 MG, ONCE/SINGLE
     Route: 042
     Dates: start: 20151218
  52. VINDESINE [Suspect]
     Active Substance: VINDESINE
     Indication: ACUTE LYMPHOCYTIC LEUKAEMIA
     Dosage: 1.6 MG, UNK
     Route: 042
     Dates: start: 20160114
  53. ASPARAGINASE [Suspect]
     Active Substance: ASPARAGINASE
     Dosage: 5400 IU, UNK
     Route: 042
  54. CYCLOPHOSPHAMIDE. [Suspect]
     Active Substance: CYCLOPHOSPHAMIDE
     Dosage: 550 MG, UNK
     Route: 042
     Dates: start: 20160730, end: 20160730
  55. CYTARABINE. [Suspect]
     Active Substance: CYTARABINE
     Dosage: 2160 MG, QD
     Route: 042
     Dates: start: 20151221
  56. CYTARABINE. [Suspect]
     Active Substance: CYTARABINE
     Dosage: 42 MG, UNK
     Route: 042
  57. CYTARABINE. [Suspect]
     Active Substance: CYTARABINE
     Dosage: UNK
     Route: 037
     Dates: start: 20160208, end: 20160208
  58. VINCRISTINE [Suspect]
     Active Substance: VINCRISTINE
     Dosage: 0.8 MG, ONCE/SINGLE
     Route: 042
     Dates: start: 20160310
  59. VINDESINE [Suspect]
     Active Substance: VINDESINE
     Indication: PHILADELPHIA CHROMOSOME POSITIVE
     Dosage: 1.6 MG, UNK
     Route: 042
     Dates: start: 20160119, end: 20160119
  60. ASPARAGINASE [Suspect]
     Active Substance: ASPARAGINASE
     Dosage: 1300 IU, QD
     Route: 042
     Dates: start: 20160303
  61. ASPARAGINASE [Suspect]
     Active Substance: ASPARAGINASE
     Dosage: 5400 IU, UNK
     Route: 042
     Dates: start: 20160313
  62. ASPARAGINASE [Suspect]
     Active Substance: ASPARAGINASE
     Dosage: 5400 IU, UNK
     Route: 042
     Dates: start: 20160630

REACTIONS (22)
  - Upper respiratory tract infection [Recovered/Resolved]
  - Neutropenia [Recovered/Resolved]
  - Neutropenia [Recovered/Resolved]
  - Hypoxia [Recovered/Resolved]
  - Pruritus [Unknown]
  - Febrile neutropenia [Recovered/Resolved]
  - Febrile neutropenia [Recovered/Resolved]
  - Neutropenia [Recovered/Resolved]
  - Stomatitis [Unknown]
  - Muscular weakness [Unknown]
  - Febrile neutropenia [Recovered/Resolved]
  - Febrile neutropenia [Recovered/Resolved]
  - Hypoxia [Recovered/Resolved]
  - Urinary tract infection [Unknown]
  - Febrile neutropenia [Recovered/Resolved]
  - Neutropenia [Recovered/Resolved]
  - Lymphopenia [Unknown]
  - Febrile neutropenia [Recovered/Resolved]
  - Pyrexia [Recovered/Resolved]
  - Neutropenia [Recovered/Resolved]
  - Infectious colitis [Unknown]
  - Febrile neutropenia [Recovered/Resolved]

NARRATIVE: CASE EVENT DATE: 20151110
